FAERS Safety Report 23175619 (Version 2)
Quarter: 2023Q4

REPORT INFORMATION
  Report Type: Report from Study
  Country: KR (occurrence: None)
  Receive Date: 20231113
  Receipt Date: 20231122
  Transmission Date: 20240110
  Serious: Yes (Life-Threatening, Hospitalization)
  Sender: FDA-Public Use
  Company Number: KR-ROCHE-3415284

PATIENT
  Age: 48 Year
  Sex: Male

DRUGS (6)
  1. ATEZOLIZUMAB [Suspect]
     Active Substance: ATEZOLIZUMAB
     Indication: Colorectal cancer metastatic
     Dosage: LAST DOSE: 11/OCT/2023
     Route: 041
     Dates: start: 20230726
  2. ATEZOLIZUMAB [Suspect]
     Active Substance: ATEZOLIZUMAB
     Route: 041
     Dates: start: 20230920, end: 20230920
  3. ATEZOLIZUMAB [Suspect]
     Active Substance: ATEZOLIZUMAB
     Route: 041
     Dates: start: 20231011, end: 20231011
  4. ZANZALINTINIB [Suspect]
     Active Substance: ZANZALINTINIB
     Indication: Colorectal cancer metastatic
     Dosage: LAST DOSE: 06/AUG/2023
     Route: 048
     Dates: start: 20230726, end: 20230806
  5. ZANZALINTINIB [Suspect]
     Active Substance: ZANZALINTINIB
     Route: 048
     Dates: start: 20230920, end: 20231010
  6. EZETIMIBE\PITAVASTATIN CALCIUM [Concomitant]
     Active Substance: EZETIMIBE\PITAVASTATIN CALCIUM
     Dates: start: 20230516

REACTIONS (2)
  - Cytokine release syndrome [Recovering/Resolving]
  - Urinary tract infection [Recovered/Resolved]

NARRATIVE: CASE EVENT DATE: 20230806
